FAERS Safety Report 7335737-8 (Version None)
Quarter: 2011Q1

REPORT INFORMATION
  Report Type: 
  Country: None (occurrence: None)
  Receive Date: 20110307
  Receipt Date: 20110301
  Transmission Date: 20110831
  Serious: Yes (Hospitalization)
  Sender: FDA-Public Use
  Company Number: B0703808A

PATIENT
  Sex: Male

DRUGS (8)
  1. IBRUPROFEN [Concomitant]
     Indication: ANTIPYRESIS
     Dosage: 300MG PER DAY
     Route: 048
  2. UNKNOWN DRUG [Concomitant]
     Dosage: 10MG PER DAY
     Route: 048
  3. VALTREX [Suspect]
     Indication: HERPES SIMPLEX
     Dosage: 1000MG PER DAY
     Route: 048
     Dates: start: 20110228, end: 20110228
  4. CHINESE MEDICINE [Concomitant]
     Indication: NASOPHARYNGITIS
     Dosage: 7.5MG PER DAY
     Route: 048
  5. DEPAS [Concomitant]
     Indication: ANXIETY
     Dosage: .5MG PER DAY
     Route: 048
  6. PELEX [Concomitant]
     Indication: NASOPHARYNGITIS
     Dosage: 3G PER DAY
     Route: 048
  7. RABEPRAZOLE SODIUM [Concomitant]
     Indication: GASTRIC ULCER
     Dosage: 20MG PER DAY
     Route: 048
  8. UNKNOWN DRUG [Concomitant]
     Indication: HYPERTENSION
     Route: 048

REACTIONS (1)
  - DELIRIUM [None]
